FAERS Safety Report 17730871 (Version 1)
Quarter: 2020Q2

REPORT INFORMATION
  Report Type: Report from Study
  Country: BR (occurrence: BR)
  Receive Date: 20200430
  Receipt Date: 20200430
  Transmission Date: 20200714
  Serious: Yes (Death, Hospitalization, Disabling, Other)
  Sender: FDA-Public Use
  Company Number: NVSC2020BR115519

PATIENT
  Sex: Female

DRUGS (1)
  1. VOTRIENT [Suspect]
     Active Substance: PAZOPANIB HYDROCHLORIDE
     Indication: PRODUCT USED FOR UNKNOWN INDICATION
     Dosage: UNK
     Route: 065
     Dates: start: 20200416, end: 20200421

REACTIONS (14)
  - Oxygen saturation decreased [Unknown]
  - Eating disorder [Unknown]
  - Dyspnoea [Unknown]
  - Paraplegia [Unknown]
  - Pneumonia [Unknown]
  - Asthenia [Unknown]
  - Confusional state [Unknown]
  - Neuroendocrine tumour of the lung [Unknown]
  - Cardiac disorder [Unknown]
  - Vomiting [Unknown]
  - Cardiac arrest [Fatal]
  - Amnesia [Unknown]
  - Pain [Recovering/Resolving]
  - Aphasia [Unknown]
